FAERS Safety Report 4509311-2 (Version None)
Quarter: 2004Q4

REPORT INFORMATION
  Report Type: 
  Country: None (occurrence: None)
  Receive Date: 20041025
  Receipt Date: 20040709
  Transmission Date: 20050328
  Serious: Yes (Hospitalization)
  Sender: FDA-Public Use
  Company Number: US-JNJFOC-20040703197

PATIENT
  Age: 21 Year
  Sex: Female
  Weight: 63.05 kg

DRUGS (6)
  1. INFLIXIMAB (INFLIXIMAB, RECOMBINANT) LYOPHILIZED POWDER [Suspect]
     Indication: CROHN'S DISEASE
     Dosage: 5 MG/KG, INTRAVENOUS
     Route: 042
     Dates: start: 20020406
  2. INFLIXIMAB (INFLIXIMAB, RECOMBINANT) LYOPHILIZED POWDER [Suspect]
     Indication: CROHN'S DISEASE
     Dosage: 5 MG/KG, INTRAVENOUS
     Route: 042
     Dates: start: 20020504
  3. AF BETA FOOD (ALL OTHER THERAPEUTIC PRODUCTS) [Concomitant]
  4. CHLOROPHYLL (CHLOROPHYLL) [Concomitant]
  5. ZYRTEC [Concomitant]
  6. GASTRAX (NIZATIDINE) [Concomitant]

REACTIONS (4)
  - CONDITION AGGRAVATED [None]
  - CROHN'S DISEASE [None]
  - INFUSION RELATED REACTION [None]
  - RASH [None]
